FAERS Safety Report 5858463-0 (Version None)
Quarter: 2008Q3

REPORT INFORMATION
  Report Type: 
  Country: None (occurrence: None)
  Receive Date: 20080826
  Receipt Date: 20080820
  Transmission Date: 20090109
  Serious: Yes (Hospitalization, Other)
  Sender: FDA-Public Use
  Company Number: JP-PFIZER INC-2007018113

PATIENT
  Age: 48 Year
  Sex: Female
  Weight: 67 kg

DRUGS (7)
  1. ATARAX [Suspect]
     Indication: ABDOMINAL PAIN
     Dosage: DAILY DOSE:25MG
     Route: 030
     Dates: start: 19870101, end: 20060901
  2. PENTAZOCINE LACTATE [Suspect]
     Indication: ABDOMINAL PAIN
     Dosage: DAILY DOSE:30MG
     Route: 030
     Dates: start: 19870101, end: 20060901
  3. PENTAZOCINE LACTATE [Suspect]
     Dosage: DAILY DOSE:200MG
     Route: 048
  4. ANALGESICS [Concomitant]
  5. LEPETAN [Concomitant]
     Route: 042
  6. INSULIN [Concomitant]
     Route: 058
  7. MORPHINE [Concomitant]

REACTIONS (2)
  - INJECTION SITE ABSCESS [None]
  - INJECTION SITE ULCER [None]
